FAERS Safety Report 9219804 (Version 1)
Quarter: 2013Q1

REPORT INFORMATION
  Report Type: Spontaneous
  Country: US (occurrence: None)
  Receive Date: 20120831
  Receipt Date: 20120831
  Transmission Date: 20140127
  Serious: No
  Sender: FDA-Public Use
  Company Number: 1000030294

PATIENT
  Age: 77 Year
  Sex: Male

DRUGS (12)
  1. DALIRESP [Suspect]
     Indication: CHRONIC OBSTRUCTIVE PULMONARY DISEASE
     Dates: start: 20111121, end: 20120502
  2. SPIRONOLACTONE [Suspect]
     Dosage: 25 MG, 1 IN 1 D
     Dates: end: 20120502
  3. FLOMAX (TAMSULOSIN) (TAMSULOSIN) [Concomitant]
  4. MUCINEX (GUAIFENESIN) (GUAIFENESIN) [Concomitant]
  5. XOPENEX (LEVOSALBUTAMOL HYDROCHLORIDE)  (LEVOSALBUTAMOL HYDROCHLORIDE) [Concomitant]
  6. METOPROLOL (METOPROLOL) (METOPROLOL) [Concomitant]
  7. ASPIRIN (ACETYLSALICYLIC ACID) (ACETYLSALICYLIC ACID) [Concomitant]
  8. LEVOXYL (LEVOTHYROXINE SODIUM) LEVOXYL (LEVOTHYROXINE SODIUM) [Concomitant]
  9. LOVASTATIN (LOVASTATIN) (LOVASTATIN) [Concomitant]
  10. NORVASC (AMLODIPINE BESILATE)  (AMLODIPINE BESILATE) [Concomitant]
  11. LASIX (FUROSEMIDE) (FUROSEMIDE) [Concomitant]
  12. POTASSIUM CHLORIDE (POTASSIUM CHLORIDE) (POTASSIUM CHLORIDE) [Concomitant]

REACTIONS (1)
  - Breast tenderness [None]
